FAERS Safety Report 23513577 (Version 1)
Quarter: 2024Q1

REPORT INFORMATION
  Report Type: Spontaneous
  Country: VE (occurrence: None)
  Receive Date: 20240212
  Receipt Date: 20240212
  Transmission Date: 20240410
  Serious: Yes (Death)
  Sender: FDA-Public Use
  Company Number: VE-ROCHE-3501652

PATIENT
  Sex: Male

DRUGS (2)
  1. TECENTRIQ [Suspect]
     Active Substance: ATEZOLIZUMAB
     Indication: Prostate cancer
     Route: 065
  2. CABOZANTINIB [Concomitant]
     Active Substance: CABOZANTINIB
     Route: 065

REACTIONS (2)
  - Off label use [Unknown]
  - Death [Fatal]
